FAERS Safety Report 16343701 (Version 8)
Quarter: 2020Q4

REPORT INFORMATION
  Report Type: Spontaneous
  Country: US (occurrence: US)
  Receive Date: 20190522
  Receipt Date: 20201208
  Transmission Date: 20210113
  Serious: Yes (Other)
  Sender: FDA-Public Use
  Company Number: US-PFIZER INC-2019217573

PATIENT
  Age: 57 Year
  Sex: Female

DRUGS (1)
  1. XELJANZ XR [Suspect]
     Active Substance: TOFACITINIB CITRATE
     Indication: RHEUMATOID ARTHRITIS
     Dosage: 11 MG, UNK

REACTIONS (21)
  - Drug ineffective [Unknown]
  - Joint swelling [Unknown]
  - Urinary tract infection [Unknown]
  - Arthralgia [Unknown]
  - Psychiatric symptom [Unknown]
  - Influenza [Recovered/Resolved]
  - Pain [Unknown]
  - Musculoskeletal stiffness [Unknown]
  - Foot deformity [Unknown]
  - Condition aggravated [Unknown]
  - Feeding disorder [Unknown]
  - Pneumonia [Recovered/Resolved]
  - Swelling [Unknown]
  - Breakthrough pain [Unknown]
  - Weight decreased [Unknown]
  - Loss of personal independence in daily activities [Unknown]
  - Peripheral swelling [Unknown]
  - Gait disturbance [Unknown]
  - Hyperphagia [Unknown]
  - Depression [Unknown]
  - Product dose omission issue [Unknown]

NARRATIVE: CASE EVENT DATE: 2019
